FAERS Safety Report 7545020-3 (Version None)
Quarter: 2011Q2

REPORT INFORMATION
  Report Type: 
  Country: None (occurrence: None)
  Receive Date: 20110614
  Receipt Date: 20091119
  Transmission Date: 20111010
  Serious: Yes (Death, Other)
  Sender: FDA-Public Use
  Company Number: US-BAYER-200940144NA

PATIENT
  Age: 64 Year
  Sex: Male
  Weight: 120 kg

DRUGS (18)
  1. HEPARIN [Concomitant]
     Dosage: 10000 UNITS
     Route: 042
     Dates: start: 20050328, end: 20050328
  2. HEPARIN [Concomitant]
     Dosage: 5000 UNITS
     Route: 042
     Dates: start: 20050328, end: 20050328
  3. VANCOMYCIN [Concomitant]
     Dosage: 1 G, UNK
     Route: 042
     Dates: start: 20050328, end: 20050328
  4. PROTAMINE SULFATE [Concomitant]
     Dosage: 600
     Dates: start: 20050328, end: 20050328
  5. AMIODARONE HCL [Concomitant]
     Dosage: 300 MG, UNK
     Route: 042
     Dates: start: 20050328, end: 20050328
  6. NITROGLYCERIN [Concomitant]
     Dosage: X 2
     Dates: start: 20050328, end: 20050328
  7. ALBUMIN (HUMAN) [Concomitant]
     Dosage: 2.5 G, UNK
     Route: 042
     Dates: start: 20050328, end: 20050328
  8. VERSED [Concomitant]
  9. ANCEF [Concomitant]
     Dosage: 1 G, UNK
     Route: 042
     Dates: start: 20050328, end: 20050328
  10. HEPARIN [Concomitant]
     Dosage: 2000 U, UNK
     Route: 042
     Dates: start: 20050328, end: 20050328
  11. HEPARIN [Concomitant]
     Dosage: 32000 UNITS
     Route: 042
     Dates: start: 20050328
  12. NEOSYNEPHRINE [Concomitant]
     Dosage: 100 MCG/24HR, UNK
     Route: 042
     Dates: start: 20050328, end: 20050328
  13. NITROGLYCERIN [Concomitant]
     Dosage: 100 MCG/24HR, UNK
     Route: 042
     Dates: start: 20050328, end: 20050328
  14. DOPAMINE HCL [Concomitant]
     Dosage: 10 MCG/KG/MIN
     Route: 042
     Dates: start: 20050328, end: 20050328
  15. EPHEDRINE [Concomitant]
  16. ACETYLSALICYLIC ACID SRT [Concomitant]
     Dosage: 325 MG, UNK
     Dates: start: 20050328, end: 20050328
  17. TRASYLOL [Suspect]
     Indication: CORONARY ARTERY BYPASS
     Dosage: 1 ML, 200 ML, 50 ML/HR
     Route: 042
     Dates: start: 20050328, end: 20050328
  18. LOPRESSOR [Concomitant]
     Dosage: 25 MG, UNK
     Route: 042
     Dates: start: 20050328, end: 20050328

REACTIONS (6)
  - INJURY [None]
  - PAIN [None]
  - RENAL FAILURE ACUTE [None]
  - DEATH [None]
  - RENAL FAILURE [None]
  - UNEVALUABLE EVENT [None]
